FAERS Safety Report 7373681-0 (Version None)
Quarter: 2011Q1

REPORT INFORMATION
  Report Type: 
  Country: None (occurrence: None)
  Receive Date: 20110325
  Receipt Date: 20110311
  Transmission Date: 20110831
  Serious: Yes (Other)
  Sender: FDA-Public Use
  Company Number: TW-RANBAXY-2010RR-40526

PATIENT
  Age: 52 Year
  Sex: Female

DRUGS (7)
  1. MEFENAMIC ACID [Suspect]
     Indication: OROPHARYNGEAL PAIN
  2. CHLORZOXAZONE [Concomitant]
     Indication: MUSCULOSKELETAL PAIN
  3. CHLORPHENAMINE [Suspect]
     Indication: OROPHARYNGEAL PAIN
  4. DICLOFENAC [Concomitant]
     Indication: MUSCULOSKELETAL PAIN
  5. OXETACAINE [Concomitant]
     Indication: MUSCULOSKELETAL PAIN
  6. TMN-1 [Suspect]
     Dosage: UNK
  7. PARACETAMOL [Suspect]
     Indication: OROPHARYNGEAL PAIN

REACTIONS (2)
  - THROMBOCYTOPENIA [None]
  - GINGIVAL BLEEDING [None]
